FAERS Safety Report 18322113 (Version 2)
Quarter: 2020Q4

REPORT INFORMATION
  Report Type: Spontaneous
  Country: TN (occurrence: TN)
  Receive Date: 20200928
  Receipt Date: 20201008
  Transmission Date: 20210113
  Serious: Yes (Hospitalization, Other)
  Sender: FDA-Public Use
  Company Number: TN-VALIDUS PHARMACEUTICALS LLC-TN-2020VAL000793

PATIENT

DRUGS (2)
  1. CEFOTAXIME SODIUM [Suspect]
     Active Substance: CEFOTAXIME SODIUM
     Indication: PRODUCT USED FOR UNKNOWN INDICATION
     Dosage: UNK
     Route: 065
  2. CEFOTAXIME SODIUM [Suspect]
     Active Substance: CEFOTAXIME SODIUM
     Indication: URINARY TRACT INFECTION
     Dosage: 1 G, TID
     Route: 065

REACTIONS (5)
  - Arteriovenous fistula thrombosis [Unknown]
  - Shunt thrombosis [Unknown]
  - Vessel puncture site thrombosis [Unknown]
  - Factor V inhibition [Recovered/Resolved]
  - Coagulation factor deficiency [Recovered/Resolved]
